FAERS Safety Report 9581621 (Version 2)
Quarter: 2013Q4

REPORT INFORMATION
  Report Type: Spontaneous
  Country: BR (occurrence: BR)
  Receive Date: 20131002
  Receipt Date: 20131002
  Transmission Date: 20140711
  Serious: Yes (Other)
  Sender: FDA-Public Use
  Company Number: BR-009507513-1208BRA010460

PATIENT
  Age: 27 Year
  Sex: Female
  Weight: 78 kg

DRUGS (3)
  1. NUVARING [Suspect]
     Indication: CONTRACEPTION
     Dosage: UNK
     Route: 067
     Dates: start: 201212, end: 201307
  2. NUVARING [Suspect]
     Dosage: UNK
     Route: 067
     Dates: start: 20130925
  3. NUVARING [Suspect]
     Dosage: UNK
     Route: 067
     Dates: start: 201204

REACTIONS (6)
  - Breast prosthesis implantation [Recovering/Resolving]
  - Endometrial atrophy [Recovered/Resolved]
  - Abnormal withdrawal bleeding [Unknown]
  - Amenorrhoea [Recovered/Resolved]
  - Drug administration error [Unknown]
  - Inappropriate schedule of drug administration [Unknown]
